FAERS Safety Report 6065045-7 (Version None)
Quarter: 2009Q1

REPORT INFORMATION
  Report Type: 
  Country: None (occurrence: None)
  Receive Date: 20090204
  Receipt Date: 20090123
  Transmission Date: 20090719
  Serious: Yes (Other)
  Sender: FDA-Public Use
  Company Number: GB-PFIZER INC-2009161020

PATIENT

DRUGS (5)
  1. CHAMPIX [Suspect]
     Indication: SMOKING CESSATION THERAPY
     Dosage: 0.5 MG, 1X/DAY
     Route: 048
     Dates: start: 20081113
  2. CHAMPIX [Suspect]
     Dosage: 0.5 MG, 2X/DAY
     Route: 048
  3. CHAMPIX [Suspect]
     Dosage: 1 MG, UNK
     Route: 048
     Dates: start: 20081120, end: 20081120
  4. LEVOTHYROXINE [Concomitant]
     Dosage: UNK
     Dates: start: 20071101
  5. SIMVASTATIN [Concomitant]
     Dosage: UNK
     Dates: start: 20060401

REACTIONS (12)
  - APHASIA [None]
  - APHONIA [None]
  - CHEST DISCOMFORT [None]
  - CHILLS [None]
  - DYSPNOEA [None]
  - DYSSTASIA [None]
  - FEELING ABNORMAL [None]
  - FEELING COLD [None]
  - FOOD AVERSION [None]
  - HEADACHE [None]
  - NAUSEA [None]
  - RETCHING [None]
